FAERS Safety Report 7573992-X (Version None)
Quarter: 2011Q2

REPORT INFORMATION
  Report Type: 
  Country: None (occurrence: None)
  Receive Date: 20110627
  Receipt Date: 20110617
  Transmission Date: 20111010
  Serious: Yes (Hospitalization, Congenital Anomaly, Other)
  Sender: FDA-Public Use
  Company Number: GB-JNJFOC-20110608902

PATIENT
  Sex: Male
  Weight: 3.44 kg

DRUGS (4)
  1. GYNO-PEVARYL [Suspect]
     Indication: DRUG EXPOSURE DURING PREGNANCY
     Route: 064
     Dates: start: 20090522, end: 20090522
  2. FERROUS SULFATE TAB [Suspect]
     Indication: DRUG EXPOSURE DURING PREGNANCY
     Route: 064
     Dates: start: 20090608, end: 20090831
  3. CEPHALEXIN [Suspect]
     Indication: DRUG EXPOSURE DURING PREGNANCY
     Route: 064
     Dates: start: 20090226, end: 20090301
  4. MMR VAX PRO [Suspect]
     Indication: DRUG EXPOSURE DURING PREGNANCY
     Route: 064
     Dates: start: 20081112, end: 20081112

REACTIONS (7)
  - MATERNAL DRUGS AFFECTING FOETUS [None]
  - CAESAREAN SECTION [None]
  - THELITIS [None]
  - TRANSIENT TACHYPNOEA OF THE NEWBORN [None]
  - DRUG EXPOSURE DURING PREGNANCY [None]
  - HIP DYSPLASIA [None]
  - BRONCHIOLITIS [None]
